FAERS Safety Report 25481345 (Version 1)
Quarter: 2025Q2

REPORT INFORMATION
  Report Type: Spontaneous
  Country: US (occurrence: US)
  Receive Date: 20250626
  Receipt Date: 20250626
  Transmission Date: 20250717
  Serious: Yes (Hospitalization, Other)
  Sender: DIFGEN PHARMACEUTICALS LLC
  Company Number: US-Difgen-012046

PATIENT
  Age: 34 Year
  Sex: Female

DRUGS (3)
  1. BUPIVACAINE [Suspect]
     Active Substance: BUPIVACAINE
     Indication: Pain
     Dosage: 40 MG/ML
     Route: 037
  2. FENTANYL [Suspect]
     Active Substance: FENTANYL
     Indication: Pain
     Dosage: 4000 MICROGRAM/ML
     Route: 037
  3. CLONIDINE [Suspect]
     Active Substance: CLONIDINE
     Indication: Pain
     Dosage: 3000 MICROGRAM /ML
     Route: 037

REACTIONS (4)
  - Spinal epidural haematoma [Recovered/Resolved]
  - Quadriparesis [Recovered/Resolved]
  - Inadequate analgesia [Recovered/Resolved]
  - Hypoaesthesia [Recovered/Resolved]
